FAERS Safety Report 12968610 (Version 3)
Quarter: 2017Q1

REPORT INFORMATION
  Report Type: Spontaneous
  Country: US (occurrence: US)
  Receive Date: 20161123
  Receipt Date: 20170223
  Transmission Date: 20170428
  Serious: Yes (Hospitalization)
  Sender: FDA-Public Use
  Company Number: US-BAYER-2016-223332

PATIENT
  Age: 32 Year
  Sex: Female
  Weight: 77.55 kg

DRUGS (2)
  1. EPIPEN [Concomitant]
     Active Substance: EPINEPHRINE
  2. MIRENA [Suspect]
     Active Substance: LEVONORGESTREL
     Indication: CONTRACEPTION
     Dosage: 20 MCG/24HR, CONT
     Route: 015
     Dates: start: 20121130, end: 20140102

REACTIONS (4)
  - Uterine perforation [None]
  - Device issue [None]
  - Uterine scar [None]
  - Scar [None]

NARRATIVE: CASE EVENT DATE: 2013
